FAERS Safety Report 10073496 (Version 1)
Quarter: 2014Q2

REPORT INFORMATION
  Report Type: Spontaneous
  Country: GB (occurrence: GB)
  Receive Date: 20140411
  Receipt Date: 20140411
  Transmission Date: 20141212
  Serious: Yes (Other)
  Sender: FDA-Public Use
  Company Number: GB-VERTEX PHARMACEUTICALS INC-2014-001895

PATIENT
  Sex: 0

DRUGS (11)
  1. INCIVO [Suspect]
     Indication: HEPATITIS C
     Route: 048
  2. PEGINTERFERON ALFA [Suspect]
     Indication: HEPATITIS C
     Dosage: UNK
     Route: 065
  3. RIBAVIRIN [Suspect]
     Indication: HEPATITIS C
     Dosage: UNK
     Route: 065
  4. TRUVADA [Concomitant]
     Indication: ANTIVIRAL TREATMENT
     Dosage: UNK
     Route: 065
  5. TENOFOVIR [Concomitant]
     Indication: ANTIVIRAL TREATMENT
     Dosage: UNK
  6. RALTEGRAVIR [Concomitant]
     Indication: ANTIVIRAL TREATMENT
     Route: 065
  7. ETRAVIRINE [Concomitant]
     Indication: ANTIVIRAL TREATMENT
     Dosage: UNK
     Route: 065
  8. DARUNIVIR [Concomitant]
     Indication: ANTIVIRAL TREATMENT
     Dosage: UNK
     Route: 065
  9. ATAZANAVIR [Concomitant]
     Indication: ANTIVIRAL TREATMENT
     Route: 065
  10. EFAVIRENZ [Concomitant]
     Indication: ANTIVIRAL TREATMENT
     Dosage: UNK
     Route: 065
  11. RILPIVIRINE [Concomitant]
     Indication: ANTIVIRAL TREATMENT
     Dosage: UNK
     Route: 065

REACTIONS (5)
  - Transfusion [Unknown]
  - Colony stimulating factor therapy [Unknown]
  - Anaemia [Unknown]
  - Drug ineffective [Unknown]
  - Off label use [Unknown]
